FAERS Safety Report 6677032-6 (Version None)
Quarter: 2010Q2

REPORT INFORMATION
  Report Type: 
  Country: None (occurrence: None)
  Receive Date: 20100412
  Receipt Date: 20100326
  Transmission Date: 20101027
  Serious: Yes (Hospitalization, Disabling, Other)
  Sender: FDA-Public Use
  Company Number: CH-BAYER-201019149GPV

PATIENT
  Age: 20 Year
  Sex: Female
  Weight: 64 kg

DRUGS (2)
  1. YASMIN [Suspect]
     Indication: MENORRHAGIA
     Route: 048
  2. ACTIVASE [Concomitant]
     Indication: INTRACRANIAL VENOUS SINUS THROMBOSIS

REACTIONS (13)
  - BRAIN OEDEMA [None]
  - CEREBRAL INFARCTION [None]
  - CHOLELITHIASIS [None]
  - CONVULSION [None]
  - DEEP VEIN THROMBOSIS [None]
  - DISSEMINATED INTRAVASCULAR COAGULATION [None]
  - HEADACHE [None]
  - INTRACRANIAL PRESSURE INCREASED [None]
  - INTRACRANIAL VENOUS SINUS THROMBOSIS [None]
  - LOSS OF CONSCIOUSNESS [None]
  - MALAISE [None]
  - SUBARACHNOID HAEMORRHAGE [None]
  - SYSTEMIC INFLAMMATORY RESPONSE SYNDROME [None]
